FAERS Safety Report 24828699 (Version 2)
Quarter: 2025Q2

REPORT INFORMATION
  Report Type: Spontaneous
  Country: US (occurrence: US)
  Receive Date: 20250110
  Receipt Date: 20250410
  Transmission Date: 20250717
  Serious: No
  Sender: SANOFI AVENTIS
  Company Number: US-SA-2025SA008130

PATIENT
  Age: 73 Year
  Sex: Female

DRUGS (1)
  1. DUPIXENT [Suspect]
     Active Substance: DUPILUMAB
     Indication: Dermatitis atopic
     Dosage: 300 MG, QOW
     Route: 058
     Dates: start: 202302

REACTIONS (3)
  - Swelling face [Recovering/Resolving]
  - Eye swelling [Recovering/Resolving]
  - Dermatitis atopic [Recovering/Resolving]
